FAERS Safety Report 24187260 (Version 1)
Quarter: 2024Q3

REPORT INFORMATION
  Report Type: Report from Study
  Country: US (occurrence: None)
  Receive Date: 20240808
  Receipt Date: 20240808
  Transmission Date: 20241017
  Serious: Yes (Other)
  Sender: ASTRAZENECA
  Company Number: 2019SF57440

PATIENT
  Sex: Female

DRUGS (2)
  1. SYMBICORT [Suspect]
     Active Substance: BUDESONIDE\FORMOTEROL FUMARATE DIHYDRATE
     Indication: Asthma
     Dosage: 160/4.5 MCG, TWO TIMES A DAY
     Route: 055
  2. TOBRAMYCIN [Concomitant]
     Active Substance: TOBRAMYCIN\TOBRAMYCIN SULFATE

REACTIONS (10)
  - Breast cancer [Unknown]
  - Pneumonia [Unknown]
  - Pseudomonas infection [Unknown]
  - Hypersensitivity [Unknown]
  - Immunodeficiency [Unknown]
  - Insomnia [Unknown]
  - Cough [Unknown]
  - Illness [Unknown]
  - Dyspnoea [Unknown]
  - Product dose omission issue [Unknown]
